FAERS Safety Report 11466452 (Version 1)
Quarter: 2015Q3

REPORT INFORMATION
  Report Type: Spontaneous
  Country: US (occurrence: US)
  Receive Date: 20150907
  Receipt Date: 20150907
  Transmission Date: 20151125
  Serious: No
  Sender: FDA-Public Use
  Company Number: US-ASTRAZENECA-2015SE82904

PATIENT

DRUGS (3)
  1. FASLODEX [Suspect]
     Active Substance: FULVESTRANT
     Indication: BREAST CANCER METASTATIC
     Dosage: 500MG INJECTION EVERY 2 WEEKS FOR THE FIRST THREE INJECTION
     Route: 030
     Dates: start: 20150114
  2. IBRANCE [Suspect]
     Active Substance: PALBOCICLIB
     Dosage: 125 MG DAILY FOR 3 WEEKS, FOLLOWED BY 1 WEEK OFF
     Route: 048
  3. FASLODEX [Suspect]
     Active Substance: FULVESTRANT
     Indication: BREAST CANCER METASTATIC
     Dosage: ONE INJECTION EVERY FOUR WEEKS
     Route: 030
     Dates: start: 20150114

REACTIONS (4)
  - Fatigue [Unknown]
  - Leukopenia [Unknown]
  - Nausea [Unknown]
  - Neutropenia [Unknown]
